FAERS Safety Report 8350691-8 (Version None)
Quarter: 2012Q2

REPORT INFORMATION
  Report Type: 
  Country: None (occurrence: None)
  Receive Date: 20120510
  Receipt Date: 20100222
  Transmission Date: 20120825
  Serious: Yes (Other)
  Sender: FDA-Public Use
  Company Number: US-GLAXOSMITHKLINE-A0845722A

PATIENT
  Age: 75 Year
  Sex: Female

DRUGS (3)
  1. VITAMIN B-12 [Concomitant]
     Indication: PRODUCT USED FOR UNKNOWN INDICATION
     Route: 065
  2. LAMOTRIGINE [Suspect]
     Indication: CONVULSION
     Dosage: 100MG SINGLE DOSE
     Route: 048
     Dates: start: 20120314, end: 20120314
  3. LAMICTAL [Suspect]
     Indication: CONVULSION
     Dosage: 100MG TWICE PER DAY
     Route: 048
     Dates: start: 20050101

REACTIONS (7)
  - PRODUCT QUALITY ISSUE [None]
  - HEAD INJURY [None]
  - DIZZINESS [None]
  - FALL [None]
  - HEADACHE [None]
  - EAR PAIN [None]
  - NAUSEA [None]
